FAERS Safety Report 7930423-5 (Version None)
Quarter: 2011Q4

REPORT INFORMATION
  Report Type: 
  Country: None (occurrence: None)
  Receive Date: 20111121
  Receipt Date: 20111107
  Transmission Date: 20120403
  Serious: Yes (Hospitalization)
  Sender: FDA-Public Use
  Company Number: US-ROCHE-1011179

PATIENT
  Sex: Male

DRUGS (4)
  1. GEMCITABINE HYDROCHLORIDE [Suspect]
     Indication: TRANSITIONAL CELL CARCINOMA
     Dosage: OVER 30 MINUTES ON DAYA 1 AND 8
     Route: 042
  2. CARBOPLATIN [Suspect]
     Indication: TRANSITIONAL CELL CARCINOMA
     Dosage: 5 AUC OVER 15 MINUTES ON DAY 1
     Route: 042
  3. HERCEPTIN [Suspect]
     Indication: TRANSITIONAL CELL CARCINOMA
     Dosage: OVER 30-90 MINUTES ON DAYS 1,8, AND 15
  4. PACLITAXEL [Suspect]
     Indication: TRANSITIONAL CELL CARCINOMA
     Dosage: OVER 3 HOURS ON DAY 1
     Route: 042

REACTIONS (4)
  - MUSCULAR WEAKNESS [None]
  - ANAEMIA [None]
  - CELLULITIS OF MALE EXTERNAL GENITAL ORGAN [None]
  - GROIN ABSCESS [None]
